FAERS Safety Report 5678591-2 (Version None)
Quarter: 2008Q1

REPORT INFORMATION
  Report Type: 
  Country: None (occurrence: None)
  Receive Date: 20080325
  Receipt Date: 20080317
  Transmission Date: 20080703
  Serious: Yes (Hospitalization, Other)
  Sender: FDA-Public Use
  Company Number: PHEH2008US02862

PATIENT
  Sex: Female

DRUGS (1)
  1. DIOVAN HCT [Suspect]

REACTIONS (2)
  - BLOOD PRESSURE INCREASED [None]
  - EYE HAEMORRHAGE [None]
